FAERS Safety Report 7551582-2 (Version None)
Quarter: 2011Q2

REPORT INFORMATION
  Report Type: 
  Country: None (occurrence: None)
  Receive Date: 20110616
  Receipt Date: 20110602
  Transmission Date: 20111010
  Serious: Yes (Other)
  Sender: FDA-Public Use
  Company Number: US-BAYER-201017558NA

PATIENT
  Age: 28 Year
  Sex: Female
  Weight: 54.422 kg

DRUGS (10)
  1. ASTELIN [Concomitant]
  2. DROSPIRENONE AND ETHINYL ESTRADIOL [Suspect]
     Indication: PRODUCT USED FOR UNKNOWN INDICATION
  3. DONNATAL [Concomitant]
     Dosage: 10CC
     Route: 048
  4. FLONASE [Concomitant]
     Route: 055
  5. WELLBUTRIN [Concomitant]
  6. YASMIN [Suspect]
     Indication: CONTRACEPTION
     Dosage: UNK
     Route: 048
     Dates: start: 20080101, end: 20081001
  7. VICODIN [Concomitant]
     Dosage: UNK UNK, PRN
  8. YAZ [Suspect]
     Indication: CONTRACEPTION
     Dosage: UNK
     Route: 048
     Dates: start: 20080101, end: 20081001
  9. MYLANTA [Concomitant]
     Dosage: 30CC
     Route: 048
  10. FLAGYL [Concomitant]

REACTIONS (6)
  - CHEMICAL PERITONITIS [None]
  - ORGAN FAILURE [None]
  - CHOLECYSTITIS ACUTE [None]
  - GALLBLADDER DISORDER [None]
  - CHOLELITHIASIS [None]
  - WEIGHT DECREASED [None]
